FAERS Safety Report 18426023 (Version 1)
Quarter: 2020Q4

REPORT INFORMATION
  Report Type: Spontaneous
  Country: US (occurrence: US)
  Receive Date: 20201026
  Receipt Date: 20201026
  Transmission Date: 20210114
  Serious: No
  Sender: FDA-Public Use
  Company Number: None

PATIENT
  Age: 35 Year

DRUGS (1)
  1. AFINITOR [Suspect]
     Active Substance: EVEROLIMUS
     Route: 048
     Dates: start: 202001

REACTIONS (4)
  - Pyrexia [None]
  - Constipation [None]
  - Diarrhoea [None]
  - Pulmonary congestion [None]

NARRATIVE: CASE EVENT DATE: 20201016
